FAERS Safety Report 10560322 (Version 2)
Quarter: 2015Q1

REPORT INFORMATION
  Report Type: Spontaneous
  Country: US (occurrence: US)
  Receive Date: 20141103
  Receipt Date: 20150102
  Transmission Date: 20150720
  Serious: Yes (Other)
  Sender: FDA-Public Use
  Company Number: US-LUNDBECK-DKLU1104973

PATIENT
  Sex: Male

DRUGS (14)
  1. SABRIL [Suspect]
     Active Substance: VIGABATRIN
     Route: 065
  2. SABRIL [Suspect]
     Active Substance: VIGABATRIN
     Route: 065
     Dates: start: 20111111
  3. SABRIL [Suspect]
     Active Substance: VIGABATRIN
     Route: 065
  4. ZONISAMIDE. [Concomitant]
     Active Substance: ZONISAMIDE
     Indication: PRODUCT USED FOR UNKNOWN INDICATION
  5. OXCARBAZEPINE. [Concomitant]
     Active Substance: OXCARBAZEPINE
     Indication: PRODUCT USED FOR UNKNOWN INDICATION
  6. SABRIL [Suspect]
     Active Substance: VIGABATRIN
     Route: 065
  7. BENZODIAZEPINE [Concomitant]
     Active Substance: BENZODIAZEPINE
     Indication: PRODUCT USED FOR UNKNOWN INDICATION
  8. SABRIL [Suspect]
     Active Substance: VIGABATRIN
     Indication: COMPLEX PARTIAL SEIZURES
     Route: 065
     Dates: start: 20100625
  9. SABRIL [Suspect]
     Active Substance: VIGABATRIN
     Route: 065
  10. SABRIL [Suspect]
     Active Substance: VIGABATRIN
     Route: 065
  11. SABRIL [Suspect]
     Active Substance: VIGABATRIN
     Route: 065
  12. LAMOTRIGINE. [Concomitant]
     Active Substance: LAMOTRIGINE
     Indication: PRODUCT USED FOR UNKNOWN INDICATION
  13. SABRIL [Suspect]
     Active Substance: VIGABATRIN
     Route: 065
  14. SABRIL [Suspect]
     Active Substance: VIGABATRIN
     Route: 065
     Dates: start: 20140909

REACTIONS (2)
  - Visual field defect [Recovering/Resolving]
  - Arthritis [Unknown]
